FAERS Safety Report 10705105 (Version 2)
Quarter: 2015Q2

REPORT INFORMATION
  Report Type: Spontaneous
  Country: FR (occurrence: FR)
  Receive Date: 20150112
  Receipt Date: 20150515
  Transmission Date: 20150821
  Serious: Yes (Congenital Anomaly)
  Sender: FDA-Public Use
  Company Number: FR-PFIZER INC-2015002293

PATIENT
  Sex: Female

DRUGS (3)
  1. CYTOTEC [Suspect]
     Active Substance: MISOPROSTOL
     Indication: ABORTION INDUCED
     Dosage: 800 ?G, SINGLE
     Route: 064
     Dates: start: 20140903, end: 20140903
  2. IBUPROFEN. [Suspect]
     Active Substance: IBUPROFEN
     Indication: ABORTION INDUCED
     Dosage: 400 MG, SINGLE
     Route: 064
     Dates: start: 20140903, end: 20140903
  3. VOLTARENE [Suspect]
     Active Substance: DICLOFENAC SODIUM
     Indication: ABORTION INDUCED
     Dosage: 100 MG, SINGLE
     Route: 064
     Dates: start: 20140903, end: 20140903

REACTIONS (2)
  - Maternal exposure during pregnancy [Not Recovered/Not Resolved]
  - Heart disease congenital [Not Recovered/Not Resolved]

NARRATIVE: CASE EVENT DATE: 20140903
